FAERS Safety Report 4548075-3 (Version None)
Quarter: 2005Q1

REPORT INFORMATION
  Report Type: 
  Country: None (occurrence: None)
  Receive Date: 20050105
  Receipt Date: 20050105
  Transmission Date: 20050727
  Serious: Yes (Other)
  Sender: FDA-Public Use
  Company Number: None

PATIENT
  Sex: Female
  Weight: 99.3377 kg

DRUGS (1)
  1. LEVAQUIN [Suspect]
     Indication: SINUS OPERATION
     Dosage: 1 TABLET DAY ORAL
     Route: 048
     Dates: start: 20041228, end: 20041231

REACTIONS (7)
  - ASTHENIA [None]
  - CONDITION AGGRAVATED [None]
  - MYALGIA [None]
  - PAIN IN EXTREMITY [None]
  - POST PROCEDURAL COMPLICATION [None]
  - TENDERNESS [None]
  - TENDONITIS [None]
